FAERS Safety Report 5659899-3 (Version None)
Quarter: 2008Q1

REPORT INFORMATION
  Report Type: 
  Country: None (occurrence: None)
  Receive Date: 20080311
  Receipt Date: 20070809
  Transmission Date: 20080703
  Serious: No
  Sender: FDA-Public Use
  Company Number: US-BAYER-200712575BCC

PATIENT
  Age: 100 Year
  Sex: Female
  Weight: 44 kg

DRUGS (9)
  1. ALEVE [Suspect]
     Indication: ARTHRALGIA
     Dosage: AS USED: 220 MG  UNIT DOSE: 220 MG
     Route: 048
     Dates: start: 20070809
  2. ULTRACET [Concomitant]
  3. TRAMADOL HCL [Concomitant]
  4. ECOTRIN [Concomitant]
  5. FOSAMAX [Concomitant]
  6. NORVASC [Concomitant]
  7. PRAVACHOL [Concomitant]
  8. AVAPRO [Concomitant]
  9. ISOSORBIDE DINITRATE [Concomitant]

REACTIONS (1)
  - RASH PRURITIC [None]
